FAERS Safety Report 6836248-6 (Version None)
Quarter: 2010Q3

REPORT INFORMATION
  Report Type: 
  Country: None (occurrence: None)
  Receive Date: 20100713
  Receipt Date: 20100713
  Transmission Date: 20110219
  Serious: Yes (Hospitalization)
  Sender: FDA-Public Use
  Company Number: None

PATIENT
  Sex: Male
  Weight: 17 kg

DRUGS (17)
  1. CYTARABINE [Suspect]
     Dosage: 70 MG
  2. DAUNORUBICIN HCL [Suspect]
     Dosage: 80 MG
  3. METHOTREXATE [Suspect]
     Dosage: 12 MG
  4. PEG-L- ASPARAGINASE (K-H) [Suspect]
     Dosage: 2000 IU
  5. PREDNISONE [Suspect]
     Dosage: 1344 MG
  6. VINCRISTINE SULFATE [Suspect]
     Dosage: 4.6 MG
  7. CODEINE [Concomitant]
  8. FLAGYL [Concomitant]
  9. FLUCONAZOLE [Concomitant]
  10. LACTULOSE [Concomitant]
  11. NYSTATIN [Concomitant]
  12. PIPERACILLIN AND TAZOBACTAM [Concomitant]
  13. SENOKOT [Concomitant]
  14. TOBRAMYCIN [Concomitant]
  15. TYLENOL [Concomitant]
  16. ZANTAC [Concomitant]
  17. ZYPREXA [Concomitant]

REACTIONS (5)
  - FEBRILE NEUTROPENIA [None]
  - HEPATIC STEATOSIS [None]
  - IRRITABILITY [None]
  - PNEUMOPERITONEUM [None]
  - SMALL INTESTINAL PERFORATION [None]
